FAERS Safety Report 19236645 (Version 1)
Quarter: 2021Q2

REPORT INFORMATION
  Report Type: Spontaneous
  Country: US (occurrence: US)
  Receive Date: 20210510
  Receipt Date: 20210510
  Transmission Date: 20210717
  Serious: Yes (Hospitalization, Other)
  Sender: FDA-Public Use
  Company Number: US-PIRAMAL PHARMA LIMITED-2021-PEL-000292

PATIENT

DRUGS (1)
  1. ISOFLURANE. [Suspect]
     Active Substance: ISOFLURANE
     Indication: INDUCTION OF ANAESTHESIA
     Dosage: UNK

REACTIONS (3)
  - Adrenal insufficiency [Unknown]
  - Hypotension [Recovered/Resolved]
  - Hypopituitarism [Unknown]
